FAERS Safety Report 10348183 (Version 2)
Quarter: 2014Q3

REPORT INFORMATION
  Report Type: Spontaneous
  Country: US (occurrence: US)
  Receive Date: 20140729
  Receipt Date: 20140729
  Transmission Date: 20150326
  Serious: Yes (Hospitalization)
  Sender: FDA-Public Use
  Company Number: US-GLAXOSMITHKLINE-A0839990A

PATIENT
  Age: 44 Year
  Sex: Female
  Weight: 104.5 kg

DRUGS (1)
  1. AVANDIA [Suspect]
     Active Substance: ROSIGLITAZONE MALEATE
     Indication: DIABETES MELLITUS
     Dosage: 4MG TWICE PER DAY
     Route: 048
     Dates: start: 2001, end: 2005

REACTIONS (6)
  - Renal disorder [Unknown]
  - Cardiac failure congestive [Unknown]
  - Acute myocardial infarction [Unknown]
  - Condition aggravated [Unknown]
  - Myocardial infarction [Unknown]
  - Renal failure acute [Unknown]

NARRATIVE: CASE EVENT DATE: 200702
